FAERS Safety Report 14158228 (Version 3)
Quarter: 2017Q4

REPORT INFORMATION
  Report Type: Spontaneous
  Country: US (occurrence: US)
  Receive Date: 20171103
  Receipt Date: 20171128
  Transmission Date: 20180321
  Serious: Yes (Other)
  Sender: FDA-Public Use
  Company Number: US-PFIZER INC-2017472584

PATIENT
  Age: 77 Year
  Sex: Female

DRUGS (2)
  1. TIKOSYN [Suspect]
     Active Substance: DOFETILIDE
     Indication: HEART RATE IRREGULAR
     Dosage: UNK
  2. TIKOSYN [Suspect]
     Active Substance: DOFETILIDE
     Indication: VENTRICULAR EXTRASYSTOLES

REACTIONS (15)
  - Blister [Unknown]
  - Malaise [Unknown]
  - Clostridium difficile infection [Unknown]
  - Polyuria [Recovering/Resolving]
  - Skin disorder [Unknown]
  - Disease recurrence [Unknown]
  - Diarrhoea [Recovering/Resolving]
  - Lymphadenopathy [Unknown]
  - Visual impairment [Not Recovered/Not Resolved]
  - Confusional state [Unknown]
  - Drug hypersensitivity [Unknown]
  - Dehydration [Unknown]
  - Abdominal discomfort [Unknown]
  - Melanocytic naevus [Unknown]
  - Rash [Unknown]
